FAERS Safety Report 5341383-8 (Version None)
Quarter: 2007Q2

REPORT INFORMATION
  Report Type: 
  Country: None (occurrence: None)
  Receive Date: 20070530
  Receipt Date: 20070515
  Transmission Date: 20071010
  Serious: Yes (Hospitalization)
  Sender: FDA-Public Use
  Company Number: S07-AUT-02229-01

PATIENT
  Age: 21 Year
  Sex: Male

DRUGS (11)
  1. ESCITALOPRAM [Suspect]
     Dosage: 10 MG QD PO
     Route: 048
     Dates: start: 20061104
  2. ESCITALOPRAM [Suspect]
     Dosage: 5 MG QD PO
     Route: 048
     Dates: start: 20061102, end: 20061103
  3. ABILIFY [Suspect]
     Dosage: 15 MG QD PO
     Route: 048
     Dates: start: 20061101, end: 20061115
  4. ABILIFY [Suspect]
     Dosage: 10 MG QD PO
     Route: 048
     Dates: start: 20061116, end: 20061130
  5. ABILIFY [Suspect]
     Dosage: 12.5 MG QD PO
     Route: 048
     Dates: start: 20061201
  6. ABILIFY [Suspect]
     Dosage: 10 MG QD PO
     Route: 048
     Dates: start: 20061021, end: 20061031
  7. ABILIFY [Suspect]
     Dosage: 5 MG QD PO
     Route: 048
     Dates: start: 20061019, end: 20061020
  8. DOMINAL FORTE (PROTHIPENDYL HYDROCHLORIDE) [Suspect]
     Dosage: 40 MG QD PO
     Route: 048
     Dates: start: 20061113, end: 20061119
  9. DOMINAL FORTE (PROTHIPENDYL HYDROCHLORIDE) [Suspect]
     Dosage: 80 MG DAILY PO
     Route: 048
     Dates: start: 20061110, end: 20061121
  10. DOMINAL FORTE (PROTHIPENDYL HYDROCHLORIDE) [Suspect]
     Dosage: 40 MG QD PO
     Route: 048
     Dates: start: 20061201
  11. OXAZEPAM [Concomitant]

REACTIONS (5)
  - EXTRAPYRAMIDAL DISORDER [None]
  - FATIGUE [None]
  - PARKINSONISM [None]
  - PSYCHOTIC DISORDER [None]
  - SOCIAL AVOIDANT BEHAVIOUR [None]
